FAERS Safety Report 21973128 (Version 2)
Quarter: 2023Q2

REPORT INFORMATION
  Report Type: Spontaneous
  Country: JP (occurrence: JP)
  Receive Date: 20230209
  Receipt Date: 20230612
  Transmission Date: 20230721
  Serious: Yes (Other)
  Sender: FDA-Public Use
  Company Number: JP-PFIZER INC-PV202300023084

PATIENT
  Age: 58 Year
  Sex: Female

DRUGS (2)
  1. METHYLPREDNISOLONE SODIUM SUCCINATE [Suspect]
     Active Substance: METHYLPREDNISOLONE SODIUM SUCCINATE
     Indication: Progressive multifocal leukoencephalopathy
     Dosage: CYCLIC (3-DAY COURSE, EVERY TWO WEEK)
     Route: 042
  2. METHYLPREDNISOLONE SODIUM SUCCINATE [Suspect]
     Active Substance: METHYLPREDNISOLONE SODIUM SUCCINATE
     Indication: Immune reconstitution inflammatory syndrome

REACTIONS (3)
  - Progressive multifocal leukoencephalopathy [Unknown]
  - Condition aggravated [Unknown]
  - Off label use [Unknown]
